FAERS Safety Report 9434891 (Version 1)
Quarter: 2013Q3

REPORT INFORMATION
  Report Type: Spontaneous
  Country: US (occurrence: US)
  Receive Date: 20130801
  Receipt Date: 20130801
  Transmission Date: 20140515
  Serious: Yes (Hospitalization, Other)
  Sender: FDA-Public Use
  Company Number: PHEH2013US015661

PATIENT
  Sex: Male

DRUGS (13)
  1. TOBI [Suspect]
     Indication: BRONCHIECTASIS
     Dosage: 300 MG, BID
  2. METFORMIN [Concomitant]
     Dosage: UNK UKN, UNK
  3. LIPITOR [Concomitant]
     Dosage: UNK UKN, UNK
  4. DIGOXIN [Concomitant]
     Dosage: UNK UKN, UNK
  5. SPIRONOLACTONE [Concomitant]
     Dosage: UNK UKN, UNK
  6. WARFARIN [Concomitant]
     Dosage: UNK UKN, UNK
  7. GLIPIZIDE [Concomitant]
     Dosage: UNK UKN, UNK
  8. NEXIUM//ESOMEPRAZOLE MAGNESIUM [Concomitant]
     Dosage: UNK UKN, UNK
  9. BUMETANIDE [Concomitant]
     Dosage: UNK UKN, UNK
  10. METOPROLOL [Concomitant]
     Dosage: UNK UKN, UNK
  11. KLOR-CON [Concomitant]
     Dosage: UNK UKN, UNK
  12. LEVOTHYROXINE [Concomitant]
     Dosage: UNK UKN, UNK
  13. CREON [Concomitant]
     Dosage: UNK UKN, UNK

REACTIONS (2)
  - General physical health deterioration [Unknown]
  - Renal failure [Unknown]
